FAERS Safety Report 13367243 (Version 3)
Quarter: 2017Q2

REPORT INFORMATION
  Report Type: Report from Study
  Country: US (occurrence: US)
  Receive Date: 20170324
  Receipt Date: 20170428
  Transmission Date: 20170830
  Serious: Yes (Hospitalization)
  Sender: FDA-Public Use
  Company Number: PHHO2017US004960

PATIENT
  Sex: Female
  Weight: 72 kg

DRUGS (4)
  1. BLINDED NO TREATMENT RECEIVED [Suspect]
     Active Substance: INVESTIGATIONAL PRODUCT
     Indication: BREAST CANCER
     Dosage: 155 MG, (TOTAL DOSE)
     Route: 048
     Dates: start: 20160729, end: 20170226
  2. COMPARATOR EXEMESTANE [Suspect]
     Active Substance: EXEMESTANE
     Indication: BREAST CANCER
     Dosage: 775 MG, (TOTAL DOSE)
     Route: 048
     Dates: start: 20170127, end: 20170326
  3. AFINITOR [Suspect]
     Active Substance: EVEROLIMUS
     Indication: BREAST CANCER
     Dosage: 155 MG, (TOTAL DOSE)
     Route: 048
     Dates: start: 20160729, end: 20170226
  4. BLINDED PLACEBO [Suspect]
     Active Substance: INVESTIGATIONAL PRODUCT
     Indication: BREAST CANCER
     Dosage: 155 MG, (TOTAL DOSE)
     Route: 048
     Dates: start: 20160729, end: 20170226

REACTIONS (2)
  - Pneumonitis [Recovered/Resolved]
  - Muscular weakness [Recovered/Resolved]

NARRATIVE: CASE EVENT DATE: 20170227
